FAERS Safety Report 5139286-7 (Version None)
Quarter: 2006Q4

REPORT INFORMATION
  Report Type: 
  Country: None (occurrence: None)
  Receive Date: 20061023
  Receipt Date: 20061004
  Transmission Date: 20070319
  Serious: Yes (Hospitalization)
  Sender: FDA-Public Use
  Company Number: US200601005066

PATIENT
  Age: 43 Year
  Sex: Male
  Weight: 98 kg

DRUGS (2)
  1. ZYPREXA [Suspect]
     Indication: SCHIZOPHRENIA
     Dosage: 10  MG, EACH EVENING; 5 MG, DAILY (1/D)
     Dates: start: 19970101
  2. ZYPREXA [Suspect]
     Indication: SCHIZOPHRENIA
     Dosage: 10  MG, EACH EVENING; 5 MG, DAILY (1/D)
     Dates: start: 20011106

REACTIONS (14)
  - BACK PAIN [None]
  - DEHYDRATION [None]
  - DIABETES MELLITUS INADEQUATE CONTROL [None]
  - DIABETES MELLITUS NON-INSULIN-DEPENDENT [None]
  - DIABETIC GASTROPARESIS [None]
  - DIZZINESS [None]
  - GASTROOESOPHAGEAL REFLUX DISEASE [None]
  - HYPONATRAEMIA [None]
  - MENTAL DISORDER [None]
  - NAUSEA [None]
  - PLATELET COUNT INCREASED [None]
  - REFLUX GASTRITIS [None]
  - VOMITING [None]
  - WEIGHT FLUCTUATION [None]
